FAERS Safety Report 9623706 (Version 1)
Quarter: 2013Q4

REPORT INFORMATION
  Report Type: Spontaneous
  Country: SE (occurrence: SE)
  Receive Date: 20131015
  Receipt Date: 20131015
  Transmission Date: 20140711
  Serious: Yes (Hospitalization)
  Sender: FDA-Public Use
  Company Number: SE-JNJFOC-20131004987

PATIENT
  Age: 28 Year
  Sex: Female

DRUGS (5)
  1. REMICADE [Suspect]
     Indication: ANKYLOSING SPONDYLITIS
     Route: 042
     Dates: start: 20120704
  2. REMICADE [Suspect]
     Indication: ANKYLOSING SPONDYLITIS
     Route: 042
     Dates: start: 20130422, end: 20130613
  3. SALAZOPYRIN [Concomitant]
     Route: 065
  4. METHOTREXATE [Concomitant]
     Route: 065
  5. PREDNISOLONE [Concomitant]
     Route: 065

REACTIONS (4)
  - Encephalitis [Unknown]
  - Enterovirus infection [Unknown]
  - Oral herpes [Unknown]
  - Drug ineffective [Unknown]
